FAERS Safety Report 9614331 (Version 1)
Quarter: 2013Q4

REPORT INFORMATION
  Report Type: Spontaneous
  Country: US (occurrence: None)
  Receive Date: 20131008
  Receipt Date: 20131008
  Transmission Date: 20140711
  Serious: Yes (Hospitalization)
  Sender: FDA-Public Use
  Company Number: None

PATIENT
  Age: 62 Year
  Sex: Male

DRUGS (2)
  1. CLOPIDOGREL [Suspect]
     Indication: CORONARY ARTERIAL STENT INSERTION
     Route: 048
     Dates: start: 20100819, end: 20130930
  2. ASPIRIN [Suspect]
     Dates: start: 20100819, end: 20130930

REACTIONS (2)
  - Dieulafoy^s vascular malformation [None]
  - Gastric haemorrhage [None]
